FAERS Safety Report 23324232 (Version 2)
Quarter: 2024Q1

REPORT INFORMATION
  Report Type: Other
  Country: CA (occurrence: CA)
  Receive Date: 20231221
  Receipt Date: 20240122
  Transmission Date: 20240410
  Serious: Yes (Hospitalization, Other)
  Sender: FDA-Public Use
  Company Number: CA-APOTEX-2021AP009170

PATIENT
  Age: 78 Year
  Sex: Female
  Weight: 72 kg

DRUGS (12)
  1. AMBRISENTAN [Suspect]
     Active Substance: AMBRISENTAN
     Indication: Pulmonary arterial hypertension
     Dosage: 5 MILLIGRAM, QD
     Route: 048
  2. AMBRISENTAN [Suspect]
     Active Substance: AMBRISENTAN
     Dosage: 10 MILLIGRAM, QD
     Route: 048
  3. OPSUMIT [Suspect]
     Active Substance: MACITENTAN
     Indication: Pulmonary arterial hypertension
     Dosage: 10 MILLIGRAM, QD
     Route: 048
  4. ADCIRCA [Concomitant]
     Active Substance: TADALAFIL
     Indication: Pulmonary arterial hypertension
     Dosage: UNK, QD
     Route: 048
  5. APIXABAN [Concomitant]
     Active Substance: APIXABAN
     Indication: Prophylaxis
     Dosage: UNK
     Route: 048
  6. DILTIAZEM [Concomitant]
     Active Substance: DILTIAZEM
     Indication: Atrial fibrillation
     Dosage: UNK
     Route: 048
  7. FLECAINIDE [Concomitant]
     Active Substance: FLECAINIDE
     Indication: Atrial fibrillation
     Dosage: UNK
     Route: 048
  8. HYDROXYCHLOROQUINE [Concomitant]
     Active Substance: HYDROXYCHLOROQUINE
     Indication: Systemic scleroderma
     Dosage: UNK
     Route: 048
  9. MYCOPHENOLATE MOFETIL [Concomitant]
     Active Substance: MYCOPHENOLATE MOFETIL
     Indication: Interstitial lung disease
     Dosage: UNK
     Route: 048
  10. OMEPRAZOLE [Concomitant]
     Active Substance: OMEPRAZOLE
     Indication: Gastrooesophageal reflux disease
     Dosage: UNK
     Route: 048
  11. SYNTHROID [Concomitant]
     Active Substance: LEVOTHYROXINE SODIUM
     Indication: Hypothyroidism
     Dosage: UNK
     Route: 048
  12. VITAMIN D3 [Concomitant]
     Active Substance: CHOLECALCIFEROL
     Indication: Nutritional supplementation
     Dosage: UNK
     Route: 048

REACTIONS (11)
  - Atrial fibrillation [Recovered/Resolved]
  - Diarrhoea [Recovered/Resolved]
  - Epistaxis [Recovered/Resolved]
  - Fall [Recovered/Resolved]
  - Productive cough [Recovered/Resolved]
  - Renal impairment [Recovered/Resolved]
  - Muscular weakness [Recovered/Resolved]
  - Fatigue [Recovered/Resolved]
  - Right ventricular failure [Recovered/Resolved]
  - Weight increased [Recovered/Resolved]
  - Oedema peripheral [Recovered/Resolved]
